FAERS Safety Report 4348685-2 (Version None)
Quarter: 2004Q2

REPORT INFORMATION
  Report Type: 
  Country: None (occurrence: None)
  Receive Date: 20040423
  Receipt Date: 20040416
  Transmission Date: 20050107
  Serious: Yes (Hospitalization)
  Sender: FDA-Public Use
  Company Number: 2004202671NL

PATIENT
  Age: 36 Year
  Sex: Female

DRUGS (1)
  1. DOSTINEX [Suspect]
     Indication: LACTATION DISORDER
     Dosage: 0.25 MG EVERY 12H, ORAL
     Route: 048
     Dates: start: 20021002, end: 20021005

REACTIONS (2)
  - ABSCESS [None]
  - MASTITIS [None]
